FAERS Safety Report 6311316-6 (Version None)
Quarter: 2009Q3

REPORT INFORMATION
  Report Type: 
  Country: None (occurrence: None)
  Receive Date: 20090817
  Receipt Date: 20090806
  Transmission Date: 20100115
  Serious: Yes (Death, Hospitalization, Disabling)
  Sender: FDA-Public Use
  Company Number: US-BAXTER-2009BH012085

PATIENT
  Age: 42 Year
  Sex: Male

DRUGS (2)
  1. DIANEAL [Suspect]
     Indication: PERITONEAL DIALYSIS
     Route: 033
     Dates: start: 19920101, end: 20090401
  2. PHOSLO [Concomitant]
     Indication: DRUG USE FOR UNKNOWN INDICATION
     Route: 065
     Dates: start: 20090101

REACTIONS (5)
  - FUNGAL PERITONITIS [None]
  - NOSOCOMIAL INFECTION [None]
  - PAIN IN EXTREMITY [None]
  - PYREXIA [None]
  - SEPSIS [None]
